FAERS Safety Report 18549132 (Version 2)
Quarter: 2021Q2

REPORT INFORMATION
  Report Type: Other
  Country: CA (occurrence: CA)
  Receive Date: 20201126
  Receipt Date: 20210523
  Transmission Date: 20210717
  Serious: Yes (Other)
  Sender: FDA-Public Use
  Company Number: CA-CELLTRION INC.-2020CA032148

PATIENT

DRUGS (7)
  1. PERINDOPRIL [Concomitant]
     Active Substance: PERINDOPRIL
  2. AMLODIPINE [Concomitant]
     Active Substance: AMLODIPINE BESYLATE
  3. RITUXIMAB (UNKNOWN) [Suspect]
     Active Substance: RITUXIMAB
     Indication: AUTOIMMUNE HAEMOLYTIC ANAEMIA
     Dosage: UNK, 1 EVERY 1 WEEK
     Route: 042
  4. PREDNISONE. [Concomitant]
     Active Substance: PREDNISONE
  5. CALCIUM [Concomitant]
     Active Substance: CALCIUM
  6. RITUXIMAB (UNKNOWN) [Suspect]
     Active Substance: RITUXIMAB
     Dosage: 100 MILLIGRAM, 1 EVERY 1 WEEK
     Route: 042
  7. METHYLPREDNISOLONE SODIUM SUCCINATE. [Concomitant]
     Active Substance: METHYLPREDNISOLONE SODIUM SUCCINATE
     Indication: PREMEDICATION
     Dosage: 100 MG
     Route: 042

REACTIONS (9)
  - Blood potassium decreased [Recovered/Resolved]
  - Hypertension [Recovered/Resolved]
  - Intentional product use issue [Recovered/Resolved]
  - Discomfort [Recovered/Resolved]
  - Bladder disorder [Recovered/Resolved]
  - Intestinal mass [Recovered/Resolved]
  - Off label use [Recovered/Resolved]
  - Blood pressure systolic abnormal [Recovered/Resolved]
  - Paraesthesia [Recovered/Resolved]
